FAERS Safety Report 5390598-1 (Version None)
Quarter: 2007Q3

REPORT INFORMATION
  Report Type: 
  Country: None (occurrence: None)
  Receive Date: 20070718
  Receipt Date: 20060721
  Transmission Date: 20080115
  Serious: No
  Sender: FDA-Public Use
  Company Number: US-KINGPHARMUSA00001-K200600948

PATIENT

DRUGS (1)
  1. LEVOXYL [Suspect]
     Dosage: 25 MCG, QD
     Route: 048
     Dates: end: 20060716

REACTIONS (2)
  - ABDOMINAL PAIN UPPER [None]
  - COLD SWEAT [None]
